FAERS Safety Report 12809691 (Version 1)
Quarter: 2016Q4

REPORT INFORMATION
  Report Type: Spontaneous
  Country: US (occurrence: US)
  Receive Date: 20161005
  Receipt Date: 20161005
  Transmission Date: 20170207
  Serious: Yes (Other)
  Sender: FDA-Public Use
  Company Number: US-B.I. PHARMACEUTICALS,INC./RIDGEFIELD-2016-BI-63586BP

PATIENT
  Age: 82 Year
  Sex: Male

DRUGS (1)
  1. COMBIVENT [Suspect]
     Active Substance: ALBUTEROL SULFATE\IPRATROPIUM BROMIDE
     Indication: DYSPNOEA
     Dosage: DOSE PER APPLICATION: 20 MCG/100 MCG
     Route: 055
     Dates: start: 201603

REACTIONS (3)
  - Cerebrovascular accident [Recovered/Resolved]
  - Confusional state [Not Recovered/Not Resolved]
  - Eye injury [Recovered/Resolved with Sequelae]

NARRATIVE: CASE EVENT DATE: 201604
